FAERS Safety Report 6108572-6 (Version None)
Quarter: 2009Q1

REPORT INFORMATION
  Report Type: 
  Country: None (occurrence: None)
  Receive Date: 20090309
  Receipt Date: 20090304
  Transmission Date: 20090719
  Serious: Yes (Hospitalization)
  Sender: FDA-Public Use
  Company Number: FR-GILEAD-2009-0019967

PATIENT
  Sex: Male

DRUGS (6)
  1. VIREAD [Suspect]
     Indication: DRUG USE FOR UNKNOWN INDICATION
     Route: 048
  2. VIDEX [Suspect]
     Route: 048
     Dates: end: 20081125
  3. KALETRA [Suspect]
     Route: 048
  4. DEPAKENE [Suspect]
     Route: 048
  5. SUSTIVA [Concomitant]
  6. TEGRETOL [Concomitant]

REACTIONS (5)
  - BLOOD LACTIC ACID INCREASED [None]
  - BLOOD PHOSPHORUS DECREASED [None]
  - MITOCHONDRIAL CYTOPATHY [None]
  - NEUROPATHY PERIPHERAL [None]
  - RENAL TUBULAR DISORDER [None]
